FAERS Safety Report 6281953-6 (Version None)
Quarter: 2009Q3

REPORT INFORMATION
  Report Type: 
  Country: None (occurrence: None)
  Receive Date: 20090724
  Receipt Date: 20090715
  Transmission Date: 20100115
  Serious: Yes (Hospitalization)
  Sender: FDA-Public Use
  Company Number: JP-BRISTOL-MYERS SQUIBB COMPANY-14642508

PATIENT
  Age: 69 Year
  Sex: Male
  Weight: 71 kg

DRUGS (13)
  1. ERBITUX [Suspect]
     Indication: RECTAL CANCER
     Dosage: 600MG 13JAN09;REDUCED TO 400 MG ON 20JAN09;ON 31MAR09 10TH, MOST RECENT AND LAST INFUSION
     Route: 042
     Dates: start: 20090113, end: 20090331
  2. POLARAMINE [Concomitant]
     Indication: PREMEDICATION
     Route: 042
     Dates: start: 20090113, end: 20090331
  3. DECADRON [Concomitant]
     Indication: PREMEDICATION
     Route: 042
     Dates: start: 20090113, end: 20090331
  4. AMLODIPINE [Concomitant]
     Indication: ANGINA PECTORIS
     Dosage: AMLODIN OD(TABS)
     Route: 048
     Dates: start: 20090113, end: 20090402
  5. LASIX [Concomitant]
     Indication: POLYURIA
     Dosage: TAKEN AS TABS
     Route: 048
     Dates: start: 20090113, end: 20090402
  6. NITROPEN [Concomitant]
     Indication: CHEST PAIN
     Route: 048
     Dates: start: 20090113, end: 20090402
  7. DAI-KENCHU-TO [Concomitant]
     Indication: RECTAL CANCER
     Dosage: GRANULES
     Route: 048
     Dates: start: 20090113, end: 20090402
  8. MAGLAX [Concomitant]
     Indication: RECTAL CANCER
     Dosage: TAKEN AS TAB
     Route: 048
     Dates: start: 20090113, end: 20090402
  9. PROTECADIN [Concomitant]
     Indication: PROPHYLAXIS
     Route: 048
     Dates: start: 20090113, end: 20090402
  10. LOPRESSOR [Concomitant]
     Indication: ANGINA PECTORIS
     Dosage: LOPRESSOR-SR(TABS)
     Route: 048
     Dates: start: 20090113, end: 20090402
  11. ITOROL [Concomitant]
     Indication: PROPHYLAXIS
     Dosage: TAKEN AS TABS
     Route: 048
     Dates: start: 20090113, end: 20090402
  12. EUGLUCON [Concomitant]
     Indication: DIABETES MELLITUS
     Dosage: TAKEN AS TAB
     Route: 048
     Dates: start: 20090113, end: 20090402
  13. WARFARIN SODIUM [Concomitant]
     Indication: PROPHYLAXIS
     Route: 048
     Dates: start: 20090113, end: 20090402

REACTIONS (1)
  - CARDIAC FAILURE [None]
